FAERS Safety Report 9482226 (Version 8)
Quarter: 2016Q3

REPORT INFORMATION
  Report Type: Spontaneous
  Country: US (occurrence: US)
  Receive Date: 20130828
  Receipt Date: 20160706
  Transmission Date: 20161109
  Serious: Yes (Other)
  Sender: FDA-Public Use
  Company Number: US-JNJFOC-20130810426

PATIENT
  Age: 45 Year
  Sex: Male
  Weight: 77.11 kg

DRUGS (11)
  1. METRONIDAZOLE. [Concomitant]
     Active Substance: METRONIDAZOLE
     Indication: PRODUCT USED FOR UNKNOWN INDICATION
     Route: 065
     Dates: start: 201101
  2. DOXYCYCLINE. [Concomitant]
     Active Substance: DOXYCYCLINE
     Indication: ROSEOLA
     Route: 065
     Dates: start: 20120307
  3. DOXYCYCLINE. [Concomitant]
     Active Substance: DOXYCYCLINE
     Indication: ROSEOLA
     Route: 065
     Dates: start: 20110121
  4. STELARA [Suspect]
     Active Substance: USTEKINUMAB
     Indication: PSORIASIS
     Route: 058
     Dates: start: 20100623
  5. DOXYCYCLINE. [Concomitant]
     Active Substance: DOXYCYCLINE
     Indication: ROSEOLA
     Route: 065
     Dates: start: 20121005
  6. LOCOID LIPOCREME [Concomitant]
     Indication: ROSACEA
     Dosage: AS REQUIRED
     Route: 065
  7. METROLOTION [Concomitant]
     Active Substance: METRONIDAZOLE
     Indication: ROSACEA
     Route: 065
  8. GABAPENTIN. [Suspect]
     Active Substance: GABAPENTIN
     Indication: PRODUCT USED FOR UNKNOWN INDICATION
     Route: 065
  9. FISH OIL [Concomitant]
     Active Substance: FISH OIL
     Indication: BLOOD CHOLESTEROL INCREASED
     Route: 065
     Dates: start: 20110822
  10. DOXYCYCLINE. [Concomitant]
     Active Substance: DOXYCYCLINE
     Indication: ROSEOLA
     Route: 065
     Dates: start: 201101
  11. ORACEA [Concomitant]
     Active Substance: DOXYCYCLINE
     Indication: ROSACEA
     Route: 065
     Dates: start: 20121005

REACTIONS (2)
  - Basal cell carcinoma [Recovered/Resolved]
  - Juvenile melanoma benign [Recovered/Resolved]

NARRATIVE: CASE EVENT DATE: 20121018
